FAERS Safety Report 13521535 (Version 1)
Quarter: 2017Q2

REPORT INFORMATION
  Report Type: Spontaneous
  Country: US (occurrence: US)
  Receive Date: 20170505
  Receipt Date: 20170505
  Transmission Date: 20170830
  Serious: Yes (Life-Threatening)
  Sender: FDA-Public Use
  Company Number: None

PATIENT
  Age: 39 Year
  Sex: Female
  Weight: 65.25 kg

DRUGS (8)
  1. ESTRACE [Suspect]
     Active Substance: ESTRADIOL
     Indication: INFERTILITY
     Route: 058
     Dates: start: 20160101, end: 20170504
  2. ESTRADIOL. [Concomitant]
     Active Substance: ESTRADIOL
  3. LUPRON [Suspect]
     Active Substance: LEUPROLIDE ACETATE
  4. ENZYNZCE [Concomitant]
  5. LABETELOL ESTRACE [Concomitant]
  6. HCG [Concomitant]
     Active Substance: GONADOTROPHIN, CHORIONIC
  7. CLOMID [Concomitant]
     Active Substance: CLOMIPHENE CITRATE
  8. PROGESTERONE. [Concomitant]
     Active Substance: PROGESTERONE

REACTIONS (1)
  - Hypothyroidism [None]

NARRATIVE: CASE EVENT DATE: 20170501
